FAERS Safety Report 9504623 (Version 1)
Quarter: 2013Q3

REPORT INFORMATION
  Report Type: Spontaneous
  Country: US (occurrence: US)
  Receive Date: 20130906
  Receipt Date: 20130906
  Transmission Date: 20140515
  Serious: No
  Sender: FDA-Public Use
  Company Number: US-PURDUE-USA-2013-0103523

PATIENT
  Sex: Female

DRUGS (2)
  1. INTERMEZZO [Suspect]
     Indication: MIDDLE INSOMNIA
     Dosage: 1.75 MG, UNK
     Route: 060
     Dates: start: 20130605
  2. MELATONIN [Concomitant]
     Indication: INSOMNIA
     Dosage: 3 MG, HS
     Route: 048
     Dates: start: 2010

REACTIONS (2)
  - Drug ineffective [Recovered/Resolved]
  - Inappropriate schedule of drug administration [Unknown]
